FAERS Safety Report 19668479 (Version 10)
Quarter: 2022Q1

REPORT INFORMATION
  Report Type: Report from Study
  Country: GR (occurrence: GR)
  Receive Date: 20210806
  Receipt Date: 20220120
  Transmission Date: 20220424
  Serious: Yes (Life-Threatening, Hospitalization, Other)
  Sender: FDA-Public Use
  Company Number: GR-BOEHRINGERINGELHEIM-2021-BI-116132

PATIENT
  Age: 64 Year
  Sex: Female
  Weight: 99 kg

DRUGS (11)
  1. NINTEDANIB [Suspect]
     Active Substance: NINTEDANIB
     Indication: Systemic scleroderma
     Route: 048
     Dates: start: 20200717, end: 20210723
  2. NINTEDANIB [Suspect]
     Active Substance: NINTEDANIB
     Indication: Interstitial lung disease
  3. BOSENTAN [Concomitant]
     Active Substance: BOSENTAN
     Indication: Systemic scleroderma
     Route: 048
  4. BOSENTAN [Concomitant]
     Active Substance: BOSENTAN
     Indication: Skin ulcer
  5. BOSENTAN [Concomitant]
     Active Substance: BOSENTAN
     Indication: Prophylaxis
  6. LEVOTHYROXINE SODIUM [Concomitant]
     Active Substance: LEVOTHYROXINE SODIUM
     Indication: Autoimmune thyroiditis
     Route: 048
  7. LOSEC [Concomitant]
     Active Substance: OMEPRAZOLE
     Indication: Gastrooesophageal reflux disease
     Route: 048
     Dates: start: 20190615
  8. PREDNISOLONE [Concomitant]
     Active Substance: PREDNISOLONE
     Indication: Systemic scleroderma
     Route: 048
  9. PROLIA [Concomitant]
     Active Substance: DENOSUMAB
     Indication: Osteoporosis
     Route: 058
     Dates: start: 20190417
  10. CALCIUM CARBONATE\CHOLECALCIFEROL [Concomitant]
     Active Substance: CALCIUM CARBONATE\CHOLECALCIFEROL
     Indication: Osteoporosis
     Dosage: DOSE: 500/400MG
     Route: 048
     Dates: start: 20190417
  11. FLUOXETINE HYDROCHLORIDE [Concomitant]
     Active Substance: FLUOXETINE HYDROCHLORIDE
     Indication: Stress
     Route: 048
     Dates: start: 20190410

REACTIONS (4)
  - Pulmonary embolism [Not Recovered/Not Resolved]
  - Dyspnoea [Not Recovered/Not Resolved]
  - Cough [Not Recovered/Not Resolved]
  - Pulmonary mass [Not Recovered/Not Resolved]

NARRATIVE: CASE EVENT DATE: 20210717
